FAERS Safety Report 6232199-9 (Version None)
Quarter: 2009Q2

REPORT INFORMATION
  Report Type: 
  Country: None (occurrence: None)
  Receive Date: 20090615
  Receipt Date: 20090610
  Transmission Date: 20091009
  Serious: Yes (Other)
  Sender: FDA-Public Use
  Company Number: A0790094A

PATIENT
  Age: 55 Year
  Sex: Female

DRUGS (1)
  1. UREA PEROXIDE [Suspect]
     Indication: CERUMEN REMOVAL
     Dosage: AURAL
     Dates: start: 20090610, end: 20090612

REACTIONS (3)
  - EAR DISCOMFORT [None]
  - EAR HAEMORRHAGE [None]
  - HYPOACUSIS [None]
